FAERS Safety Report 5421321-X (Version None)
Quarter: 2007Q3

REPORT INFORMATION
  Report Type: 
  Country: None (occurrence: None)
  Receive Date: 20070719
  Receipt Date: 20070212
  Transmission Date: 20080115
  Serious: Yes (Death)
  Sender: FDA-Public Use
  Company Number: OMPQ-PR-0702S-0081

PATIENT
  Age: 58 Year
  Sex: Female

DRUGS (1)
  1. OMNIPAQUE 140 [Suspect]
     Indication: PULMONARY EMBOLISM
     Dosage: 100 ML, SINGLE DOSE, I.V.
     Route: 042
     Dates: start: 20070128, end: 20070128

REACTIONS (5)
  - ANAPHYLACTOID SHOCK [None]
  - CHEST PAIN [None]
  - DIZZINESS [None]
  - DYSPNOEA [None]
  - HYPERHIDROSIS [None]
